FAERS Safety Report 24530334 (Version 8)
Quarter: 2025Q3

REPORT INFORMATION
  Report Type: Report from Study
  Country: US (occurrence: US)
  Receive Date: 20241021
  Receipt Date: 20250729
  Transmission Date: 20251020
  Serious: Yes (Hospitalization)
  Sender: CSL BEHRING
  Company Number: US-BEH-2024182263

PATIENT
  Age: 65 Year
  Sex: Female
  Weight: 74.83 kg

DRUGS (3)
  1. ZEMAIRA [Suspect]
     Active Substance: .ALPHA.1-PROTEINASE INHIBITOR HUMAN
     Indication: Alpha-1 antitrypsin deficiency
     Route: 065
  2. ZEMAIRA [Suspect]
     Active Substance: .ALPHA.1-PROTEINASE INHIBITOR HUMAN
     Dosage: UNK, QW
     Route: 065
  3. ZEMAIRA [Suspect]
     Active Substance: .ALPHA.1-PROTEINASE INHIBITOR HUMAN
     Dosage: QW
     Route: 042

REACTIONS (9)
  - Sepsis [Recovering/Resolving]
  - Catheter site infection [Not Recovered/Not Resolved]
  - Catheter site haematoma [Not Recovered/Not Resolved]
  - Blood test abnormal [Unknown]
  - Abdominal pain upper [Recovered/Resolved]
  - Constipation [Unknown]
  - Arteriovenous fistula [Recovered/Resolved]
  - Muscle spasms [Recovered/Resolved]
  - Pain [Unknown]

NARRATIVE: CASE EVENT DATE: 20241001
